FAERS Safety Report 10425325 (Version 2)
Quarter: 2015Q2

REPORT INFORMATION
  Report Type: Spontaneous
  Country: JP (occurrence: JP)
  Receive Date: 20140902
  Receipt Date: 20150512
  Transmission Date: 20150821
  Serious: Yes (Death, Other)
  Sender: FDA-Public Use
  Company Number: PHHY2014JP110091

PATIENT
  Age: 74 Year
  Sex: Male

DRUGS (2)
  1. GLIVEC [Suspect]
     Active Substance: IMATINIB MESYLATE
     Indication: CHRONIC MYELOID LEUKAEMIA
     Dosage: 400 MG, QD
     Route: 065
  2. GLIVEC [Suspect]
     Active Substance: IMATINIB MESYLATE
     Dosage: 400 MG, UNK
     Route: 065

REACTIONS (4)
  - Second primary malignancy [Unknown]
  - Malignant neoplasm of unknown primary site [Fatal]
  - Throat cancer [Recovered/Resolved]
  - Pharyngeal cancer [Recovered/Resolved]

NARRATIVE: CASE EVENT DATE: 2006
